FAERS Safety Report 10426388 (Version 1)
Quarter: 2014Q3

REPORT INFORMATION
  Report Type: Spontaneous
  Country: IL (occurrence: IL)
  Receive Date: 20140903
  Receipt Date: 20140903
  Transmission Date: 20150326
  Serious: Yes (Hospitalization)
  Sender: FDA-Public Use
  Company Number: IL-JNJFOC-20140825948

PATIENT
  Age: 64 Year
  Sex: Female
  Weight: 95 kg

DRUGS (12)
  1. BEDODEKA [Concomitant]
     Route: 065
  2. ENALADEX [Concomitant]
     Active Substance: ENALAPRIL MALEATE
     Route: 065
  3. SIMVASTATIN. [Concomitant]
     Active Substance: SIMVASTATIN
     Route: 065
  4. ALLORIL [Concomitant]
     Route: 065
  5. METFORMIN [Concomitant]
     Active Substance: METFORMIN HYDROCHLORIDE
     Route: 065
  6. OMEPRADEX [Concomitant]
     Active Substance: OMEPRAZOLE
     Route: 065
  7. FOLIC ACID. [Concomitant]
     Active Substance: FOLIC ACID
     Route: 065
  8. BISACODYL. [Concomitant]
     Active Substance: BISACODYL
     Route: 065
  9. ELATROL [Concomitant]
     Route: 065
  10. GABAPENTIN. [Concomitant]
     Active Substance: GABAPENTIN
     Route: 065
  11. SIMPONI [Suspect]
     Active Substance: GOLIMUMAB
     Indication: RHEUMATOID ARTHRITIS
     Route: 058
     Dates: start: 20140527, end: 20140717
  12. DISOTHIAZIDE [Concomitant]
     Route: 065

REACTIONS (1)
  - Polyneuropathy [Not Recovered/Not Resolved]
